FAERS Safety Report 21476174 (Version 1)
Quarter: 2022Q4

REPORT INFORMATION
  Report Type: Report from Study
  Country: FR (occurrence: FR)
  Receive Date: 20221019
  Receipt Date: 20221019
  Transmission Date: 20230112
  Serious: Yes (Hospitalization, Other)
  Sender: FDA-Public Use
  Company Number: FR-MYLANLABS-2022M1110419

PATIENT
  Age: 9 Decade

DRUGS (1)
  1. PREDNISONE [Suspect]
     Active Substance: PREDNISONE
     Indication: Sarcoidosis
     Dosage: 20 MILLIGRAM, ONCE A DAY
     Route: 065

REACTIONS (1)
  - COVID-19 pneumonia [Unknown]
